FAERS Safety Report 16782476 (Version 5)
Quarter: 2019Q4

REPORT INFORMATION
  Report Type: Report from Study
  Country: US (occurrence: US)
  Receive Date: 20190906
  Receipt Date: 20191205
  Transmission Date: 20200122
  Serious: Yes (Hospitalization)
  Sender: FDA-Public Use
  Company Number: US-EISAI MEDICAL RESEARCH-EC-2019-060642

PATIENT
  Sex: Female
  Weight: 72 kg

DRUGS (25)
  1. ATENOLOL. [Concomitant]
     Active Substance: ATENOLOL
  2. IRON [Concomitant]
     Active Substance: IRON
  3. HYDROXYZINE [Concomitant]
     Active Substance: HYDROXYZINE HYDROCHLORIDE
  4. TEKTURNA [Concomitant]
     Active Substance: ALISKIREN HEMIFUMARATE
  5. LENVIMA [Suspect]
     Active Substance: LENVATINIB
     Indication: METASTASES TO BONE
     Route: 048
     Dates: start: 201909, end: 2019
  6. LETROZOLE. [Concomitant]
     Active Substance: LETROZOLE
  7. LISINOPRIL. [Concomitant]
     Active Substance: LISINOPRIL
  8. PANTOPRAZOLE [Concomitant]
     Active Substance: PANTOPRAZOLE
  9. LENVIMA [Suspect]
     Active Substance: LENVATINIB
     Indication: METASTASES TO BREAST
     Route: 048
     Dates: start: 2019
  10. LEVOTHYROXINE. [Concomitant]
     Active Substance: LEVOTHYROXINE
  11. LENVIMA [Suspect]
     Active Substance: LENVATINIB
     Indication: METASTASES TO LUNG
     Route: 048
     Dates: start: 201908, end: 20190912
  12. LENVIMA [Suspect]
     Active Substance: LENVATINIB
     Indication: THYROID CANCER METASTATIC
     Route: 048
     Dates: start: 20190808, end: 201908
  13. EZETIMIBE. [Concomitant]
     Active Substance: EZETIMIBE
  14. HYDRALAZINE [Concomitant]
     Active Substance: HYDRALAZINE HYDROCHLORIDE
  15. VITAMIN B12 [Concomitant]
     Active Substance: CYANOCOBALAMIN
  16. ALPRAZOLAM. [Concomitant]
     Active Substance: ALPRAZOLAM
  17. DESOXIMETASONE. [Concomitant]
     Active Substance: DESOXIMETASONE
  18. LOSARTAN. [Suspect]
     Active Substance: LOSARTAN
     Indication: PRODUCT USED FOR UNKNOWN INDICATION
     Dosage: DOSE AND FREQUENCY UNKNOWN.
     Route: 065
  19. XANAX [Concomitant]
     Active Substance: ALPRAZOLAM
  20. ZYRTEC [Concomitant]
     Active Substance: CETIRIZINE HYDROCHLORIDE
  21. AMLODIPINE [Concomitant]
     Active Substance: AMLODIPINE BESYLATE
  22. SENOKOT [Concomitant]
     Active Substance: SENNOSIDES
  23. METHYLPREDNISOLONE. [Concomitant]
     Active Substance: METHYLPREDNISOLONE
  24. BACTRIM [Concomitant]
     Active Substance: SULFAMETHOXAZOLE\TRIMETHOPRIM
  25. IMODIUM [Concomitant]
     Active Substance: LOPERAMIDE HYDROCHLORIDE

REACTIONS (24)
  - Insomnia [Unknown]
  - Dental caries [Unknown]
  - Erythema [Unknown]
  - Pruritus [Unknown]
  - Dysphonia [Recovering/Resolving]
  - Haemorrhoidal haemorrhage [Unknown]
  - Inappropriate antidiuretic hormone secretion [Recovered/Resolved]
  - Hypertension [Unknown]
  - Fatigue [Unknown]
  - Urinary tract infection [Unknown]
  - Constipation [Unknown]
  - Onychoclasis [Unknown]
  - Oedema peripheral [Recovering/Resolving]
  - Gastrointestinal haemorrhage [Unknown]
  - Dry mouth [Unknown]
  - Palmar-plantar erythrodysaesthesia syndrome [Unknown]
  - Pain in extremity [Unknown]
  - Blood sodium decreased [Unknown]
  - Diarrhoea [Unknown]
  - Faeces discoloured [Unknown]
  - Haematochezia [Unknown]
  - Headache [Unknown]
  - Cough [Recovering/Resolving]
  - Eye pain [Unknown]

NARRATIVE: CASE EVENT DATE: 2019
